FAERS Safety Report 14717499 (Version 1)
Quarter: 2018Q2

REPORT INFORMATION
  Report Type: Spontaneous
  Country: US (occurrence: US)
  Receive Date: 20180404
  Receipt Date: 20180404
  Transmission Date: 20180711
  Serious: No
  Sender: FDA-Public Use
  Company Number: US-SA-2018SA006861

PATIENT
  Age: 24 Year
  Sex: Female

DRUGS (3)
  1. BETAMETHASONE DIPROPIONATE. [Concomitant]
     Active Substance: BETAMETHASONE DIPROPIONATE
     Route: 065
  2. DUPIXENT [Suspect]
     Active Substance: DUPILUMAB
     Indication: PSORIASIS
     Dosage: ROUTE- UNDER THE SKIN
     Dates: start: 20170621
  3. CYCLOSPORINE. [Concomitant]
     Active Substance: CYCLOSPORINE
     Indication: DERMATITIS ATOPIC
     Dosage: CYCLOSPORINE WAS TAKEN AT A DOSE OF 100 2-3 TIMES DAILY
     Route: 065
     Dates: start: 201412

REACTIONS (3)
  - Product use in unapproved indication [Unknown]
  - Eye discharge [Not Recovered/Not Resolved]
  - Periorbital oedema [Unknown]

NARRATIVE: CASE EVENT DATE: 20170621
